FAERS Safety Report 10412465 (Version 2)
Quarter: 2014Q4

REPORT INFORMATION
  Report Type: Spontaneous
  Country: US (occurrence: None)
  Receive Date: 20140821
  Receipt Date: 20141027
  Transmission Date: 20150528
  Serious: Yes (Other)
  Sender: FDA-Public Use
  Company Number: 1713747-2014-99935

PATIENT
  Sex: Female

DRUGS (4)
  1. LIBERTY CYCLER TUBING [Concomitant]
  2. DELFLEX [Suspect]
     Active Substance: CALCIUM CHLORIDE\DEXTROSE MONOHYDRATE\MAGNESIUM CHLORIDE\SODIUM CHLORIDE\SODIUM LACTATE
     Indication: CHRONIC KIDNEY DISEASE
     Dosage: PERITONEAL DIALYSIS
     Dates: start: 20140106
  3. DELFLEX [Suspect]
     Active Substance: CALCIUM CHLORIDE\DEXTROSE MONOHYDRATE\MAGNESIUM CHLORIDE\SODIUM CHLORIDE\SODIUM LACTATE
     Indication: PERITONEAL DIALYSIS
     Dosage: PERITONEAL DIALYSIS
     Dates: start: 20140106
  4. LIBERTY CYCLER [Concomitant]
     Active Substance: DEVICE

REACTIONS (2)
  - Blood pressure fluctuation [None]
  - Product quality issue [None]

NARRATIVE: CASE EVENT DATE: 20140106
